FAERS Safety Report 12946024 (Version 6)
Quarter: 2019Q1

REPORT INFORMATION
  Report Type: Spontaneous
  Country: US (occurrence: US)
  Receive Date: 20161116
  Receipt Date: 20190110
  Transmission Date: 20190417
  Serious: Yes (Hospitalization)
  Sender: FDA-Public Use
  Company Number: US-ASTRAZENECA-2016SF18041

PATIENT
  Age: 29154 Day
  Sex: Female
  Weight: 86.2 kg

DRUGS (10)
  1. INVOKANA [Concomitant]
     Active Substance: CANAGLIFLOZIN
  2. BYDUREON BCISE [Suspect]
     Active Substance: EXENATIDE
     Route: 065
     Dates: start: 201812
  3. IBUPROFEN. [Concomitant]
     Active Substance: IBUPROFEN
     Indication: ARTHRITIS
     Dosage: 800.0MG AS REQUIRED
  4. BYDUREON [Suspect]
     Active Substance: EXENATIDE
     Indication: TYPE 2 DIABETES MELLITUS
     Route: 058
  5. IBUPROFEN. [Concomitant]
     Active Substance: IBUPROFEN
     Indication: PAIN
     Dosage: 800.0MG AS REQUIRED
  6. BABY ASPIRIN [Concomitant]
     Active Substance: ASPIRIN
  7. FARXIGA [Suspect]
     Active Substance: DAPAGLIFLOZIN PROPANEDIOL
     Route: 048
  8. BENAZEPRIL [Concomitant]
     Active Substance: BENAZEPRIL HYDROCHLORIDE
     Indication: HYPERTENSION
  9. GLIPIZIDE. [Concomitant]
     Active Substance: GLIPIZIDE
     Indication: DIABETES MELLITUS
     Dosage: ONE IN MORNING, ONE AT LUNCH, TWO AT DINNER
  10. ACARBOSE. [Concomitant]
     Active Substance: ACARBOSE
     Indication: DIABETES MELLITUS

REACTIONS (16)
  - Lower limb fracture [Unknown]
  - Vaginal discharge [Unknown]
  - Contusion [Unknown]
  - Drug ineffective [Unknown]
  - Infection [Unknown]
  - Product dose omission [Unknown]
  - Myocardial infarction [Unknown]
  - Visual impairment [Unknown]
  - Weight increased [Unknown]
  - Incorrect dose administered by device [Unknown]
  - Musculoskeletal disorder [Unknown]
  - Intentional device misuse [Unknown]
  - Hypoacusis [Unknown]
  - Body height decreased [Unknown]
  - Device leakage [Unknown]
  - Device issue [Unknown]

NARRATIVE: CASE EVENT DATE: 20160907
